FAERS Safety Report 16860632 (Version 1)
Quarter: 2019Q3

REPORT INFORMATION
  Report Type: Report from Study
  Country: CA (occurrence: CA)
  Receive Date: 20190927
  Receipt Date: 20190927
  Transmission Date: 20191005
  Serious: Yes (Death, Hospitalization, Other)
  Sender: FDA-Public Use
  Company Number: CA-PFIZER INC-2019418573

PATIENT
  Age: 77 Year
  Sex: Female

DRUGS (3)
  1. SPIRONOLACTONE. [Concomitant]
     Active Substance: SPIRONOLACTONE
     Dosage: UNK
  2. SANDOSTATIN LAR DEPOT [Interacting]
     Active Substance: OCTREOTIDE ACETATE
     Indication: NEUROENDOCRINE TUMOUR
     Dosage: 30 MG, 1 EVERY 4 WEEKS
     Route: 030
  3. AMIODARONE HCL [Suspect]
     Active Substance: AMIODARONE HYDROCHLORIDE
     Dosage: UNK
     Route: 065

REACTIONS (14)
  - Bradycardia [Fatal]
  - Loss of consciousness [Fatal]
  - Weight increased [Fatal]
  - Asthenia [Fatal]
  - Cholelithiasis [Fatal]
  - Fatigue [Fatal]
  - Terminal state [Fatal]
  - Pneumonia [Fatal]
  - Urinary tract infection [Fatal]
  - Drug interaction [Fatal]
  - Syncope [Fatal]
  - Device related infection [Fatal]
  - Mobility decreased [Fatal]
  - Blood pressure increased [Fatal]
